FAERS Safety Report 5273100-4 (Version None)
Quarter: 2007Q1

REPORT INFORMATION
  Report Type: 
  Country: None (occurrence: None)
  Receive Date: 20070316
  Receipt Date: 20070302
  Transmission Date: 20070707
  Serious: Yes (Disabling)
  Sender: FDA-Public Use
  Company Number: 233645

PATIENT
  Age: 62 Year
  Sex: Female
  Weight: 76 kg

DRUGS (3)
  1. RANIBIZUMAB(RANIBIZUMAB) PWDR + SOLVENT,INJECTION SOLN [Suspect]
     Indication: CHOROIDAL NEOVASCULARISATION
  2. AVASTIN [Suspect]
     Indication: DRUG USE FOR UNKNOWN INDICATION
  3. VISUDYNE [Suspect]
     Indication: CHOROIDAL NEOVASCULARISATION
     Dates: start: 20060623

REACTIONS (3)
  - CONJUNCTIVAL DISORDER [None]
  - PROCEDURAL COMPLICATION [None]
  - RETINAL HAEMORRHAGE [None]
